FAERS Safety Report 6229660-X (Version None)
Quarter: 2009Q2

REPORT INFORMATION
  Report Type: 
  Country: None (occurrence: None)
  Receive Date: 20090615
  Receipt Date: 20090608
  Transmission Date: 20091009
  Serious: Yes (Other)
  Sender: FDA-Public Use
  Company Number: B0578019A

PATIENT
  Age: 85 Year
  Sex: Male

DRUGS (1)
  1. ARIXTRA [Suspect]
     Dosage: 2.5ML PER DAY
     Route: 058
     Dates: start: 20090601, end: 20090606

REACTIONS (1)
  - PULMONARY EMBOLISM [None]
